FAERS Safety Report 9103653 (Version 1)
Quarter: 2013Q1

REPORT INFORMATION
  Report Type: Spontaneous
  Country: BR (occurrence: BR)
  Receive Date: 20130218
  Receipt Date: 20130218
  Transmission Date: 20140127
  Serious: Yes (Other)
  Sender: FDA-Public Use
  Company Number: BR-GLAXOSMITHKLINE-A1012278A

PATIENT
  Age: 30 Year
  Sex: Male
  Weight: 70 kg

DRUGS (4)
  1. NIQUITIN [Suspect]
     Indication: SMOKING CESSATION THERAPY
     Dosage: 21MG PER DAY
     Route: 062
     Dates: start: 20121230
  2. AMIODARONE HYDROCHLORIDE [Suspect]
     Dosage: 1TAB PER DAY
     Route: 065
     Dates: start: 2008
  3. OMEPRAZOLE [Concomitant]
     Dosage: 1TAB IN THE MORNING
     Dates: start: 20130120
  4. ATENOLOL [Concomitant]
     Dosage: 1TAB IN THE MORNING
     Dates: start: 2008

REACTIONS (4)
  - Mental impairment [Recovered/Resolved]
  - Bradyphrenia [Recovered/Resolved]
  - Nausea [Recovering/Resolving]
  - Abdominal discomfort [Recovering/Resolving]
